FAERS Safety Report 21253041 (Version 1)
Quarter: 2022Q3

REPORT INFORMATION
  Report Type: Spontaneous
  Country: AU (occurrence: AU)
  Receive Date: 20220825
  Receipt Date: 20220825
  Transmission Date: 20221027
  Serious: Yes (Other)
  Sender: FDA-Public Use
  Company Number: AU-BAXTER-2022BAX017890

PATIENT
  Age: 41 Year
  Sex: Male

DRUGS (15)
  1. DOXORUBICIN [Suspect]
     Active Substance: DOXORUBICIN
     Indication: Thymic cancer metastatic
     Dosage: (RECHALLENGED)
     Route: 065
     Dates: start: 202102
  2. DOXORUBICIN [Suspect]
     Active Substance: DOXORUBICIN
     Dosage: (RECHALLENGED) TWO CYCLES
     Route: 065
     Dates: start: 202107
  3. DOXORUBICIN [Suspect]
     Active Substance: DOXORUBICIN
     Dosage: (RECHALLENGED) TWO CYCLES
     Route: 065
     Dates: start: 202108
  4. CYCLOPHOSPHAMIDE [Suspect]
     Active Substance: CYCLOPHOSPHAMIDE
     Indication: Thymic cancer metastatic
     Dosage: UNK
     Route: 065
     Dates: start: 202008
  5. CYCLOPHOSPHAMIDE [Suspect]
     Active Substance: CYCLOPHOSPHAMIDE
     Dosage: (RECHALLENGED)
     Route: 065
     Dates: start: 202102
  6. CYCLOPHOSPHAMIDE [Suspect]
     Active Substance: CYCLOPHOSPHAMIDE
     Dosage: (RECHALLENGED) TWO CYCLES
     Route: 065
     Dates: start: 202107
  7. CYCLOPHOSPHAMIDE [Suspect]
     Active Substance: CYCLOPHOSPHAMIDE
     Dosage: (RECHALLENGED) TWO CYCLES
     Route: 065
     Dates: start: 202108
  8. VINCRISTINE [Suspect]
     Active Substance: VINCRISTINE
     Indication: Thymic cancer metastatic
     Dosage: UNK
     Route: 065
     Dates: start: 202008
  9. VINCRISTINE [Suspect]
     Active Substance: VINCRISTINE
     Dosage: (RECHALLENGED)
     Route: 065
     Dates: start: 202102
  10. VINCRISTINE [Suspect]
     Active Substance: VINCRISTINE
     Dosage: (RECHALLENGED) TWO CYCLES
     Route: 065
     Dates: start: 202107
  11. VINCRISTINE [Suspect]
     Active Substance: VINCRISTINE
     Dosage: (RECHALLENGED) TWO CYCLES
     Route: 065
     Dates: start: 202108
  12. CARBOPLATIN [Suspect]
     Active Substance: CARBOPLATIN
     Indication: Thymic cancer metastatic
     Dosage: FOUR CYCLES (CARBOPLATIN-ETOPOSIDE)
     Route: 065
     Dates: start: 201907, end: 201909
  13. CARBOPLATIN [Suspect]
     Active Substance: CARBOPLATIN
     Dosage: (RECOMMENCED CARBOPLATIN-ETOPOSIDE)
     Route: 065
     Dates: start: 202002
  14. ETOPOSIDE [Suspect]
     Active Substance: ETOPOSIDE
     Indication: Thymic cancer metastatic
     Dosage: FOUR CYCLES (CARBOPLATIN-ETOPOSIDE)
     Route: 065
     Dates: start: 201907, end: 201909
  15. ETOPOSIDE [Suspect]
     Active Substance: ETOPOSIDE
     Dosage: (RECOMMENCED CARBOPLATIN-ETOPOSIDE)
     Route: 065
     Dates: start: 202002

REACTIONS (2)
  - Thymic cancer metastatic [Unknown]
  - Disease progression [Unknown]

NARRATIVE: CASE EVENT DATE: 20210901
